FAERS Safety Report 13466421 (Version 1)
Quarter: 2017Q2

REPORT INFORMATION
  Report Type: Spontaneous
  Country: US (occurrence: US)
  Receive Date: 20170421
  Receipt Date: 20170421
  Transmission Date: 20170830
  Serious: Yes (Other)
  Sender: FDA-Public Use
  Company Number: US-BAYER-2017-071321

PATIENT
  Age: 67 Year
  Sex: Female

DRUGS (1)
  1. BETASERON [Suspect]
     Active Substance: INTERFERON BETA-1B
     Indication: MULTIPLE SCLEROSIS
     Dosage: 0.3 MG, QOD
     Route: 058

REACTIONS (8)
  - Influenza like illness [None]
  - Chills [None]
  - Gait disturbance [None]
  - Joint swelling [None]
  - Injection site reaction [None]
  - Nausea [None]
  - Peripheral swelling [None]
  - Multiple sclerosis relapse [None]
